FAERS Safety Report 9577070 (Version 1)
Quarter: 2013Q4

REPORT INFORMATION
  Report Type: Spontaneous
  Country: US (occurrence: US)
  Receive Date: 20131001
  Receipt Date: 20131001
  Transmission Date: 20140711
  Serious: No
  Sender: FDA-Public Use
  Company Number: US-AMGEN-USASP2013006060

PATIENT
  Age: 40 Year
  Sex: Male

DRUGS (2)
  1. ENBREL [Suspect]
     Indication: ANKYLOSING SPONDYLITIS
     Dosage: 50 MG, QWK
     Dates: start: 201111
  2. METHOTREXATE [Concomitant]
     Dosage: 7.5 MG, QWK

REACTIONS (3)
  - Pain in extremity [Recovered/Resolved]
  - Drug effect incomplete [Recovered/Resolved]
  - Inflammation [Recovered/Resolved]
